FAERS Safety Report 9745356 (Version 1)
Quarter: 2013Q4

REPORT INFORMATION
  Report Type: Spontaneous
  Country: US (occurrence: None)
  Receive Date: 20131206
  Receipt Date: 20131206
  Transmission Date: 20140711
  Serious: Yes (Other)
  Sender: FDA-Public Use
  Company Number: None

PATIENT
  Age: 42 Year
  Sex: Male
  Weight: 92.99 kg

DRUGS (1)
  1. PENICILLIN VK [Suspect]

REACTIONS (4)
  - Anxiety [None]
  - Feeling abnormal [None]
  - Paranoia [None]
  - Fear [None]
